FAERS Safety Report 4799395-9 (Version None)
Quarter: 2005Q4

REPORT INFORMATION
  Report Type: 
  Country: None (occurrence: None)
  Receive Date: 20051013
  Receipt Date: 20050928
  Transmission Date: 20060501
  Serious: Yes (Hospitalization)
  Sender: FDA-Public Use
  Company Number: 2005133399

PATIENT
  Age: 1 Year
  Sex: Female

DRUGS (1)
  1. GENOTONORM  (SOMATROPIN) [Suspect]
     Indication: PRADER-WILLI SYNDROME
     Dosage: 0.3 MG (0.3 MG, DAILY),
     Dates: start: 20040818

REACTIONS (6)
  - DACRYOSTENOSIS ACQUIRED [None]
  - LACRIMAL DISORDER [None]
  - SLEEP APNOEA SYNDROME [None]
  - SOMNOLENCE [None]
  - TONSILLAR HYPERTROPHY [None]
  - TONSILLITIS [None]
